FAERS Safety Report 4358989-5 (Version None)
Quarter: 2004Q2

REPORT INFORMATION
  Report Type: 
  Country: None (occurrence: None)
  Receive Date: 20040512
  Receipt Date: 20040423
  Transmission Date: 20050107
  Serious: Yes (Other)
  Sender: FDA-Public Use
  Company Number: US_0404102618

PATIENT
  Age: 89 Year
  Sex: Female

DRUGS (2)
  1. EVISTA [Suspect]
     Dates: start: 19990101
  2. CALCIUM WITH VITAMIN D [Concomitant]

REACTIONS (1)
  - FRACTURE [None]
